FAERS Safety Report 5416391-9 (Version None)
Quarter: 2007Q3

REPORT INFORMATION
  Report Type: 
  Country: None (occurrence: None)
  Receive Date: 20070816
  Receipt Date: 20070813
  Transmission Date: 20080115
  Serious: Yes (Death)
  Sender: FDA-Public Use
  Company Number: PHEH2007US11038

PATIENT
  Age: 77 Year
  Sex: Male

DRUGS (1)
  1. EXJADE [Suspect]
     Dosage: 125MG QD, 1000MG QD
     Route: 048
     Dates: start: 20070710

REACTIONS (1)
  - DEATH [None]
